FAERS Safety Report 26104539 (Version 1)
Quarter: 2025Q4

REPORT INFORMATION
  Report Type: Report from Study
  Country: CA (occurrence: CA)
  Receive Date: 20251130
  Receipt Date: 20251130
  Transmission Date: 20260118
  Serious: Yes (Hospitalization, Other)
  Sender: ABBVIE
  Company Number: CA-ABBVIE-6566620

PATIENT
  Age: 66 Year
  Sex: Female

DRUGS (1)
  1. RINVOQ [Suspect]
     Active Substance: UPADACITINIB
     Indication: Crohn^s disease
     Dosage: FORM STRENGTH 15 MG
     Route: 048

REACTIONS (10)
  - Hypokalaemia [Unknown]
  - Nausea [Unknown]
  - Vomiting [Unknown]
  - Pyrexia [Unknown]
  - Chills [Unknown]
  - Decreased appetite [Unknown]
  - Stoma site haemorrhage [Unknown]
  - Stoma site infection [Unknown]
  - Colostomy closure [Unknown]
  - Debridement [Unknown]

NARRATIVE: CASE EVENT DATE: 20250101
